FAERS Safety Report 4802752-5 (Version None)
Quarter: 2005Q4

REPORT INFORMATION
  Report Type: 
  Country: None (occurrence: None)
  Receive Date: 20051017
  Receipt Date: 20051017
  Transmission Date: 20060501
  Serious: Yes (Hospitalization)
  Sender: FDA-Public Use
  Company Number: None

PATIENT
  Age: 67 Year
  Sex: Male

DRUGS (13)
  1. PLAVIX [Suspect]
     Dosage: 75MG PO QD
     Route: 048
     Dates: start: 20041129, end: 20051013
  2. FOSINOPRIL SODIUM [Concomitant]
  3. FUROSEMIDE [Concomitant]
  4. CLOPIDOGREL BISULFATE [Concomitant]
  5. LORATADINE [Concomitant]
  6. SPIRONOLACTONE [Concomitant]
  7. RANITIDINE [Concomitant]
  8. SIMVASTATIN [Concomitant]
  9. ALBUTEROL [Concomitant]
  10. CARVEDILOL [Concomitant]
  11. IPRATROPIUM BROMIDE [Concomitant]
  12. NITROGLYCERIN [Concomitant]
  13. WARFARIN [Concomitant]

REACTIONS (3)
  - CONVULSION [None]
  - POST PROCEDURAL COMPLICATION [None]
  - SUBDURAL HAEMORRHAGE [None]
